FAERS Safety Report 23151779 (Version 1)
Quarter: 2023Q4

REPORT INFORMATION
  Report Type: Spontaneous
  Country: PT (occurrence: PT)
  Receive Date: 20231107
  Receipt Date: 20231107
  Transmission Date: 20240110
  Serious: Yes (Death, Hospitalization)
  Sender: FDA-Public Use
  Company Number: PT-EMA-2023503-AUTODUP-1683149456849

PATIENT
  Age: 63 Year
  Sex: Male

DRUGS (5)
  1. PEMETREXED [Suspect]
     Active Substance: PEMETREXED
     Indication: Product used for unknown indication
     Dosage: UNK
     Route: 065
  2. PEMBROLIZUMAB [Suspect]
     Active Substance: PEMBROLIZUMAB
     Indication: Product used for unknown indication
     Dosage: UNK
     Route: 065
  3. PEMBROLIZUMAB [Suspect]
     Active Substance: PEMBROLIZUMAB
     Dosage: UNK
     Route: 065
  4. PLATINUM [Suspect]
     Active Substance: PLATINUM
     Indication: Product used for unknown indication
     Dosage: UNK
     Route: 065
  5. PLATINUM [Suspect]
     Active Substance: PLATINUM
     Dosage: UNK
     Route: 065

REACTIONS (5)
  - Condition aggravated [Fatal]
  - Abnormal faeces [Unknown]
  - Flatulence [Unknown]
  - Vomiting [Unknown]
  - Diarrhoea [Unknown]
